FAERS Safety Report 4485446-8 (Version None)
Quarter: 2004Q4

REPORT INFORMATION
  Report Type: 
  Country: None (occurrence: None)
  Receive Date: 20041026
  Receipt Date: 20041014
  Transmission Date: 20050328
  Serious: Yes (Other)
  Sender: FDA-Public Use
  Company Number: US-BRISTOL-MYERS SQUIBB COMPANY-12731949

PATIENT
  Sex: Male

DRUGS (11)
  1. ABILIFY [Suspect]
     Dosage: TWO TABLETS IN THE MORNING AND ONE TABLET IN THE EVENING.
     Route: 048
  2. BUSPIRONE HCL TABS 15 MG [Suspect]
     Route: 048
  3. CLONAZEPAM [Concomitant]
  4. CLOZARIL [Concomitant]
  5. DARVOCET-N 100 [Concomitant]
  6. DULCOLAX [Concomitant]
  7. FLORINEF [Concomitant]
  8. IMODIUM [Concomitant]
  9. PROVIGIL [Concomitant]
  10. TYLENOL [Concomitant]
  11. ZELNORM [Concomitant]

REACTIONS (4)
  - ABDOMINAL PAIN [None]
  - NAUSEA [None]
  - PRESCRIBED OVERDOSE [None]
  - SPLENIC INFARCTION [None]
